FAERS Safety Report 5964313-4 (Version None)
Quarter: 2008Q4

REPORT INFORMATION
  Report Type: 
  Country: None (occurrence: None)
  Receive Date: 20081124
  Receipt Date: 20081117
  Transmission Date: 20090506
  Serious: Yes (Other)
  Sender: FDA-Public Use
  Company Number: AU-PFIZER INC-2008097723

PATIENT
  Sex: Female

DRUGS (2)
  1. XANAX [Suspect]
  2. ALL OTHER THERAPEUTIC PRODUCTS [Concomitant]

REACTIONS (3)
  - ANXIETY [None]
  - INTRAOCULAR PRESSURE INCREASED [None]
  - VISION BLURRED [None]
